FAERS Safety Report 23366192 (Version 1)
Quarter: 2024Q1

REPORT INFORMATION
  Report Type: Spontaneous
  Country: US (occurrence: None)
  Receive Date: 20240103
  Receipt Date: 20240103
  Transmission Date: 20240410
  Serious: No
  Sender: FDA-Public Use
  Company Number: None

PATIENT
  Sex: Female

DRUGS (1)
  1. SIMPONI ARIA [Suspect]
     Active Substance: GOLIMUMAB
     Indication: Rheumatoid arthritis
     Dosage: OTHER FREQUENCY : Q 8 WEEKS;?
     Route: 042
     Dates: start: 20230720

REACTIONS (2)
  - SARS-CoV-2 test positive [None]
  - Malaise [None]
